FAERS Safety Report 19231023 (Version 5)
Quarter: 2021Q3

REPORT INFORMATION
  Report Type: Report from Study
  Country: US (occurrence: US)
  Receive Date: 20210507
  Receipt Date: 20210812
  Transmission Date: 20211014
  Serious: Yes (Other)
  Sender: FDA-Public Use
  Company Number: NVSC2021US095899

PATIENT
  Age: 58 Year
  Sex: Male

DRUGS (1)
  1. ENTRESTO [Suspect]
     Active Substance: SACUBITRIL\VALSARTAN
     Indication: PRODUCT USED FOR UNKNOWN INDICATION
     Dosage: UNK, BID
     Route: 048
     Dates: start: 2019

REACTIONS (10)
  - Atrial fibrillation [Unknown]
  - Decreased activity [Unknown]
  - Ventricular tachycardia [Unknown]
  - Atrial tachycardia [Unknown]
  - Arthropathy [Unknown]
  - Dyspnoea [Unknown]
  - Weight decreased [Unknown]
  - Pericarditis [Unknown]
  - Atrial flutter [Unknown]
  - Cardiac disorder [Unknown]
